FAERS Safety Report 6640557-3 (Version None)
Quarter: 2010Q1

REPORT INFORMATION
  Report Type: 
  Country: None (occurrence: None)
  Receive Date: 20100318
  Receipt Date: 20100311
  Transmission Date: 20100710
  Serious: Yes (Other)
  Sender: FDA-Public Use
  Company Number: JP-PFIZER INC-2010033349

PATIENT
  Age: 17 Year
  Sex: Female

DRUGS (1)
  1. ATARAX [Suspect]
     Dosage: FREQUENCY: 3X/DAY,

REACTIONS (1)
  - ENCEPHALOPATHY [None]
